FAERS Safety Report 18422590 (Version 2)
Quarter: 2021Q3

REPORT INFORMATION
  Report Type: Report from Study
  Country: CA (occurrence: CA)
  Receive Date: 20201023
  Receipt Date: 20210709
  Transmission Date: 20211014
  Serious: Yes (Life-Threatening, Hospitalization, Other)
  Sender: FDA-Public Use
  Company Number: CA-ASTRAZENECA-2020SF37572

PATIENT
  Age: 74 Year
  Sex: Female

DRUGS (12)
  1. GLYCOPYRRONIUM BROMIDE [Suspect]
     Active Substance: GLYCOPYRROLATE
     Indication: PRODUCT USED FOR UNKNOWN INDICATION
     Route: 065
  2. ADVAIR HFA [Suspect]
     Active Substance: FLUTICASONE PROPIONATE\SALMETEROL XINAFOATE
     Indication: PRODUCT USED FOR UNKNOWN INDICATION
     Dosage: 2.0DF UNKNOWN
     Route: 065
     Dates: start: 20191117
  3. SYMBICORT [Suspect]
     Active Substance: BUDESONIDE\FORMOTEROL FUMARATE DIHYDRATE
     Indication: ASTHMA
     Dosage: BUDESONIDE, FORMOTEROL FUMARATE
     Route: 055
     Dates: start: 20191118
  4. NUCALA [Suspect]
     Active Substance: MEPOLIZUMAB
     Indication: PRODUCT USED FOR UNKNOWN INDICATION
     Route: 065
  5. SYMBICORT [Suspect]
     Active Substance: BUDESONIDE\FORMOTEROL FUMARATE DIHYDRATE
     Indication: ASTHMA
     Dosage: 2 DF, 2 EVERY 1 DAYS
     Route: 055
     Dates: start: 20191118
  6. NUCALA [Suspect]
     Active Substance: MEPOLIZUMAB
     Indication: EOSINOPHILIC GRANULOMATOSIS WITH POLYANGIITIS
     Route: 065
     Dates: start: 20200515
  7. NUCALA [Suspect]
     Active Substance: MEPOLIZUMAB
     Indication: EOSINOPHILIC GRANULOMATOSIS WITH POLYANGIITIS
     Route: 065
  8. SALBUTAMOL SULFATE [Suspect]
     Active Substance: ALBUTEROL SULFATE
     Indication: EOSINOPHILIC GRANULOMATOSIS WITH POLYANGIITIS
     Route: 065
  9. NUCALA [Suspect]
     Active Substance: MEPOLIZUMAB
     Indication: PRODUCT USED FOR UNKNOWN INDICATION
     Route: 065
     Dates: start: 20200515
  10. PREDNISONE. [Suspect]
     Active Substance: PREDNISONE
     Indication: PRODUCT USE IN UNAPPROVED INDICATION
     Route: 048
  11. NUCALA [Suspect]
     Active Substance: MEPOLIZUMAB
     Indication: PRODUCT USED FOR UNKNOWN INDICATION
     Route: 065
  12. NUCALA [Suspect]
     Active Substance: MEPOLIZUMAB
     Indication: EOSINOPHILIC GRANULOMATOSIS WITH POLYANGIITIS
     Route: 065

REACTIONS (21)
  - Cardiac failure [Unknown]
  - Loss of personal independence in daily activities [Recovering/Resolving]
  - Pneumonia [Unknown]
  - Asthma [Recovering/Resolving]
  - Organ failure [Unknown]
  - Renal failure [Unknown]
  - Sleep disorder due to a general medical condition [Recovering/Resolving]
  - Erythema [Unknown]
  - Cardiomyopathy [Unknown]
  - Peripheral swelling [Unknown]
  - Shock [Unknown]
  - Terminal state [Unknown]
  - Dyspnoea [Recovered/Resolved]
  - Pulmonary alveolar haemorrhage [Unknown]
  - Wheezing [Recovered/Resolved]
  - Arrhythmia [Unknown]
  - Lung disorder [Unknown]
  - Renal impairment [Unknown]
  - Eosinophilic granulomatosis with polyangiitis [Unknown]
  - Vasculitis [Unknown]
  - Therapeutic product effect incomplete [Unknown]
